FAERS Safety Report 7079461-8 (Version None)
Quarter: 2010Q4

REPORT INFORMATION
  Report Type: 
  Country: None (occurrence: None)
  Receive Date: 20101022
  Receipt Date: 20101011
  Transmission Date: 20110411
  Serious: Yes (Other)
  Sender: FDA-Public Use
  Company Number: 2010MA003629

PATIENT
  Age: 37 Year
  Sex: Male

DRUGS (3)
  1. CITALOPRAM HYDROBROMIDE [Suspect]
     Indication: DEPRESSION
  2. ESCITALOPRAM [Suspect]
     Indication: DEPRESSION
     Dosage: PO
     Route: 048
  3. CIPRAMIL (CITALOPRAM HYDROBROMIDE) [Suspect]
     Indication: DEPRESSION
     Dosage: PO
     Route: 048

REACTIONS (2)
  - TREMOR [None]
  - VISUAL FIELD DEFECT [None]
